FAERS Safety Report 21973508 (Version 3)
Quarter: 2023Q4

REPORT INFORMATION
  Report Type: Spontaneous
  Country: US (occurrence: US)
  Receive Date: 20230209
  Receipt Date: 20231106
  Transmission Date: 20240109
  Serious: Yes (Other)
  Sender: FDA-Public Use
  Company Number: US-PFIZER INC-PV202300025709

PATIENT
  Age: 75 Year
  Sex: Female

DRUGS (2)
  1. IBRANCE [Suspect]
     Active Substance: PALBOCICLIB
     Dosage: 75 MG
     Route: 048
  2. IBRANCE [Suspect]
     Active Substance: PALBOCICLIB
     Dosage: 75 MG, CYCLIC DAILY, ON DAYS 1-14, THEN 14 DAYS OFF (28 DAYS CYCLE)
     Route: 048

REACTIONS (3)
  - Neutropenia [Unknown]
  - Neoplasm progression [Unknown]
  - Off label use [Unknown]
